FAERS Safety Report 8017990-0 (Version None)
Quarter: 2012Q1

REPORT INFORMATION
  Report Type: 
  Country: None (occurrence: None)
  Receive Date: 20120103
  Receipt Date: 20111227
  Transmission Date: 20120608
  Serious: Yes (Other)
  Sender: FDA-Public Use
  Company Number: DE-B.I. PHARMACEUTICALS,INC./RIDGEFIELD-2011-DE-06916DE

PATIENT
  Age: 71 Year
  Sex: Male

DRUGS (5)
  1. TAMSULOSIN HCL [Concomitant]
  2. THOREM [Concomitant]
  3. PRADAXA [Suspect]
     Indication: ATRIAL FIBRILLATION
     Dosage: 300 MG
     Dates: end: 20111223
  4. BISOPROLOL [Concomitant]
  5. ASPIRIN [Concomitant]

REACTIONS (4)
  - THROMBIN TIME PROLONGED [None]
  - HAEMOGLOBIN DECREASED [None]
  - THROMBOCYTOPENIA [None]
  - ACTIVATED PARTIAL THROMBOPLASTIN TIME [None]
